FAERS Safety Report 17743995 (Version 7)
Quarter: 2025Q3

REPORT INFORMATION
  Report Type: Spontaneous
  Country: EU (occurrence: EU)
  Receive Date: 20200505
  Receipt Date: 20250710
  Transmission Date: 20251020
  Serious: Yes (Hospitalization, Other)
  Sender: NOVARTIS
  Company Number: None

PATIENT
  Age: 6 Month
  Sex: Female

DRUGS (8)
  1. CYCLOSPORINE [Suspect]
     Active Substance: CYCLOSPORINE
     Indication: Prophylaxis against graft versus host disease
     Route: 065
  2. FLUDARABINE PHOSPHATE [Suspect]
     Active Substance: FLUDARABINE PHOSPHATE
     Indication: Allogenic stem cell transplantation
     Dosage: 150 MG/M2, QD (50 MG/M2, TID (3/DAY)
     Route: 065
  3. THIOTEPA [Suspect]
     Active Substance: THIOTEPA
     Indication: Allogenic stem cell transplantation
     Dosage: 10 MG/KG, QD (5 MG/KG, BID (2/DAY)
     Route: 065
  4. PREDNISONE [Suspect]
     Active Substance: PREDNISONE
     Indication: Prophylaxis against graft versus host disease
     Dosage: 0.4 MG/KG, QD (1/DAY)
     Route: 065
  5. BUSULFAN [Suspect]
     Active Substance: BUSULFAN
     Indication: Allogenic stem cell transplantation
     Dosage: 9.6 MG/KG, QD (3.2 MG/KG, TID (3/DAY)
     Route: 065
  6. CYCLOPHOSPHAMIDE [Suspect]
     Active Substance: CYCLOPHOSPHAMIDE
     Indication: Prophylaxis against graft versus host disease
     Dosage: 100 MG/KG, QD (50 MG/KG, BID (2/DAY)
     Route: 065
  7. LAPINE T-LYMPHOCYTE IMMUNE GLOBULIN [Suspect]
     Active Substance: LAPINE T-LYMPHOCYTE IMMUNE GLOBULIN
     Indication: Allogenic stem cell transplantation
     Dosage: 13.5 MG/KG, QD (4.5 MG/KG, TID (3/DAY)
     Route: 065
  8. THYMOGLOBULIN [Suspect]
     Active Substance: LAPINE T-LYMPHOCYTE IMMUNE GLOBULIN
     Indication: Allogenic stem cell transplantation
     Dosage: 13.5 MG/KG, QD(13.5 MG/KG, QD, 3 DOSAGES 4.5 MG/KG DAILY, 4.5 MG/KG, TID (3/DAY)  )
     Route: 065

REACTIONS (5)
  - Graft versus host disease [Recovered/Resolved]
  - Polymyositis [Recovered/Resolved]
  - Pseudomonal sepsis [Unknown]
  - Pneumonia [Unknown]
  - Chronic graft versus host disease [Recovered/Resolved]
